FAERS Safety Report 11108509 (Version 1)
Quarter: 2015Q2

REPORT INFORMATION
  Report Type: Spontaneous
  Country: US (occurrence: US)
  Receive Date: 20150513
  Receipt Date: 20150513
  Transmission Date: 20150821
  Serious: No
  Sender: FDA-Public Use
  Company Number: US-009507513-1505USA003241

PATIENT
  Age: 40 Year
  Sex: Female

DRUGS (1)
  1. GRASTEK [Suspect]
     Active Substance: PHLEUM PRATENSE POLLEN
     Dosage: 1 DF, QD
     Route: 060
     Dates: start: 20150331, end: 20150505

REACTIONS (2)
  - Gingival discolouration [Unknown]
  - Gingival disorder [Unknown]

NARRATIVE: CASE EVENT DATE: 20150430
